FAERS Safety Report 8968307 (Version 1)
Quarter: 2012Q4

REPORT INFORMATION
  Report Type: Spontaneous
  Country: US (occurrence: None)
  Receive Date: 20121214
  Receipt Date: 20121214
  Transmission Date: 20130627
  Serious: Yes (Death, Other)
  Sender: FDA-Public Use
  Company Number: None

PATIENT
  Age: 22 Year
  Sex: Female
  Weight: 81.65 kg

DRUGS (2)
  1. IMPLANON [Suspect]
     Indication: PREMENSTRUAL SYNDROME
     Dates: start: 20120412, end: 20121206
  2. IMPLANON [Suspect]
     Indication: MIGRAINE
     Dates: start: 20120412, end: 20121206

REACTIONS (4)
  - Haemorrhage [None]
  - Muscle spasms [None]
  - Muscle contractions involuntary [None]
  - Pain in extremity [None]
